FAERS Safety Report 10307793 (Version 1)
Quarter: 2014Q3

REPORT INFORMATION
  Report Type: Spontaneous
  Country: FR (occurrence: FR)
  Receive Date: 20140716
  Receipt Date: 20140716
  Transmission Date: 20150326
  Serious: Yes (Death)
  Sender: FDA-Public Use
  Company Number: FR-ASTELLAS-2014EU009687

PATIENT
  Age: 5 Year
  Sex: Female

DRUGS (2)
  1. MYCAMINE [Suspect]
     Active Substance: MICAFUNGIN SODIUM
     Indication: ASPERGILLUS INFECTION
     Dosage: UNK UNK, UNKNOWN FREQ.
     Route: 042
  2. AMBISOME [Suspect]
     Active Substance: AMPHOTERICIN B
     Indication: ASPERGILLUS INFECTION
     Dosage: UNK, UNKNOWN FREQ.
     Route: 065

REACTIONS (2)
  - Off label use [Unknown]
  - Death [Fatal]
